FAERS Safety Report 8272945-6 (Version None)
Quarter: 2012Q2

REPORT INFORMATION
  Report Type: 
  Country: None (occurrence: None)
  Receive Date: 20120406
  Receipt Date: 20120406
  Transmission Date: 20120825
  Serious: No
  Sender: FDA-Public Use
  Company Number: None

PATIENT
  Age: 61 Year
  Sex: Female
  Weight: 61.4 kg

DRUGS (2)
  1. KETOCONAZOLE [Suspect]
     Indication: PRURITUS
     Dosage: KETOCONAZOLE 2% SHAMPOO ON SCALP BI-WKLY SCALP/SHAMPOO
     Route: 061
     Dates: start: 20120322
  2. KETOCONAZOLE [Suspect]
     Indication: SKIN EXFOLIATION
     Dosage: KETOCONAZOLE 2% SHAMPOO ON SCALP BI-WKLY SCALP/SHAMPOO
     Route: 061
     Dates: start: 20120322

REACTIONS (7)
  - THROAT IRRITATION [None]
  - NAUSEA [None]
  - BURNING SENSATION MUCOSAL [None]
  - OROPHARYNGEAL BLISTERING [None]
  - DIZZINESS [None]
  - DYSGEUSIA [None]
  - ORAL DISCOMFORT [None]
